FAERS Safety Report 25791677 (Version 1)
Quarter: 2025Q3

REPORT INFORMATION
  Report Type: Spontaneous
  Country: US (occurrence: None)
  Receive Date: 20250911
  Receipt Date: 20250911
  Transmission Date: 20251020
  Serious: Yes (Other)
  Sender: FDA-CTU
  Company Number: None

PATIENT
  Sex: Male

DRUGS (5)
  1. INVEGA SUSTENNA [Suspect]
     Active Substance: PALIPERIDONE PALMITATE
     Dosage: ADMINISTER IN THE MUSCLE EVERY MONTH?
     Route: 030
     Dates: start: 20250911
  2. LITHIUM CARBONATE [Concomitant]
     Active Substance: LITHIUM CARBONATE
  3. OLANZAPINE [Concomitant]
     Active Substance: OLANZAPINE
  4. QUETIAPINE [Concomitant]
     Active Substance: QUETIAPINE
  5. TRAZODONE [Concomitant]
     Active Substance: TRAZODONE HYDROCHLORIDE

REACTIONS (1)
  - Psychotic symptom [None]
